FAERS Safety Report 6072286-1 (Version None)
Quarter: 2009Q1

REPORT INFORMATION
  Report Type: 
  Country: None (occurrence: None)
  Receive Date: 20090206
  Receipt Date: 20090206
  Transmission Date: 20090719
  Serious: Yes (Disabling)
  Sender: FDA-Public Use
  Company Number: None

PATIENT
  Age: 53 Year
  Sex: Female
  Weight: 67.1324 kg

DRUGS (1)
  1. FOSAMAX [Suspect]
     Indication: OSTEOPENIA
     Dosage: 70MG 1XWEEK
     Dates: start: 20000101, end: 20080401

REACTIONS (7)
  - BONE PAIN [None]
  - BREAST CANCER [None]
  - FEMUR FRACTURE [None]
  - GAIT DISTURBANCE [None]
  - LIMB DISCOMFORT [None]
  - MUSCLE SPASMS [None]
  - STRESS FRACTURE [None]
